FAERS Safety Report 10022658 (Version 4)
Quarter: 2014Q3

REPORT INFORMATION
  Report Type: Report from Study
  Country: AU (occurrence: AU)
  Receive Date: 20140319
  Receipt Date: 20140723
  Transmission Date: 20150326
  Serious: Yes (Hospitalization, Other)
  Sender: FDA-Public Use
  Company Number: AU-SA-2014SA030133

PATIENT
  Age: 65 Year
  Sex: Male

DRUGS (4)
  1. AUBAGIO [Suspect]
     Active Substance: TERIFLUNOMIDE
     Indication: PRODUCT USED FOR UNKNOWN INDICATION
     Route: 048
     Dates: start: 20120415
  2. MULTIVITAMINS [Concomitant]
     Active Substance: VITAMINS
  3. AMOXIL [Suspect]
     Active Substance: AMOXICILLIN
     Indication: PRODUCT USED FOR UNKNOWN INDICATION
     Route: 065
  4. LITHIUM [Concomitant]
     Active Substance: LITHIUM CARBONATE

REACTIONS (11)
  - Drug hypersensitivity [Unknown]
  - Rhinorrhoea [Not Recovered/Not Resolved]
  - Spinal laminectomy [Unknown]
  - Feeling abnormal [Not Recovered/Not Resolved]
  - Nausea [Unknown]
  - Intervertebral disc protrusion [Recovering/Resolving]
  - Diarrhoea [Recovering/Resolving]
  - Intervertebral disc compression [Recovering/Resolving]
  - Back pain [Recovering/Resolving]
  - Rash [Recovered/Resolved]
  - Cough [Not Recovered/Not Resolved]

NARRATIVE: CASE EVENT DATE: 20130912
